FAERS Safety Report 6388872-5 (Version None)
Quarter: 2009Q4

REPORT INFORMATION
  Report Type: 
  Country: None (occurrence: None)
  Receive Date: 20091001
  Receipt Date: 20090922
  Transmission Date: 20100525
  Serious: Yes (Other)
  Sender: FDA-Public Use
  Company Number: ADR29792009

PATIENT
  Age: 73 Year
  Sex: Male

DRUGS (1)
  1. RAMIPRIL [Suspect]
     Indication: CARDIAC FAILURE
     Dosage: 5 MG, ORAL
     Route: 048
     Dates: start: 20061222, end: 20061223

REACTIONS (1)
  - CHEST PAIN [None]
